FAERS Safety Report 8151974-7 (Version None)
Quarter: 2012Q1

REPORT INFORMATION
  Report Type: 
  Country: None (occurrence: None)
  Receive Date: 20120221
  Receipt Date: 20120217
  Transmission Date: 20120608
  Serious: No
  Sender: FDA-Public Use
  Company Number: US-PFIZER INC-2012043632

PATIENT
  Sex: Male
  Weight: 14.966 kg

DRUGS (3)
  1. CHILDREN'S ADVIL [Suspect]
     Indication: ABDOMINAL PAIN UPPER
  2. CHILDREN'S DIMETAPP COLD + COUGH [Concomitant]
     Indication: NASOPHARYNGITIS
     Dosage: UNK
  3. CHILDREN'S ADVIL [Suspect]
     Indication: PYREXIA
     Dosage: UNK, 3X/DAY
     Route: 048
     Dates: start: 20120101, end: 20120201

REACTIONS (2)
  - VOMITING [None]
  - POOR QUALITY DRUG ADMINISTERED [None]
